FAERS Safety Report 6758614-X (Version None)
Quarter: 2010Q2

REPORT INFORMATION
  Report Type: 
  Country: None (occurrence: None)
  Receive Date: 20100603
  Receipt Date: 20100517
  Transmission Date: 20101027
  Serious: Yes (Life-Threatening, Other)
  Sender: FDA-Public Use
  Company Number: 20100221

PATIENT
  Age: 67 Year
  Sex: Male

DRUGS (2)
  1. DEHYDRATED ALCOHOL INJECTION, USP (8571-10) 99.50% [Suspect]
     Indication: HEPATIC NEOPLASM MALIGNANT
     Dosage: 20 ML OTHER
     Route: 050
  2. ANESTHESIA [Concomitant]

REACTIONS (7)
  - BRADYCARDIA [None]
  - CARDIOVASCULAR DISORDER [None]
  - HYPOTENSION [None]
  - METABOLIC ACIDOSIS [None]
  - RESPIRATORY ACIDOSIS [None]
  - RESUSCITATION [None]
  - SINUS TACHYCARDIA [None]
